FAERS Safety Report 9124877 (Version 2)
Quarter: 2013Q1

REPORT INFORMATION
  Report Type: Report from Study
  Country: ES (occurrence: ES)
  Receive Date: 20130227
  Receipt Date: 20130306
  Transmission Date: 20140127
  Serious: Yes (Hospitalization)
  Sender: FDA-Public Use
  Company Number: ES-AMGEN-ESPCT2013013759

PATIENT
  Age: 64 Year
  Sex: Female

DRUGS (3)
  1. PANITUMUMAB [Suspect]
     Indication: ANAL CANCER
     Dosage: 384 MG, UNK
     Route: 042
     Dates: start: 20130108
  2. 5-FLUOROURACIL [Concomitant]
     Indication: ANAL CANCER
     Dosage: 6900 MG, UNK
     Route: 042
     Dates: start: 20130108
  3. MITOMICINA C [Concomitant]
     Indication: ANAL CANCER
     Dosage: 6700 MG, UNK
     Route: 042
     Dates: start: 20130108

REACTIONS (1)
  - Febrile neutropenia [Not Recovered/Not Resolved]
